FAERS Safety Report 18171249 (Version 2)
Quarter: 2020Q3

REPORT INFORMATION
  Report Type: Report from Study
  Country: None (occurrence: US)
  Receive Date: 20200819
  Receipt Date: 20200823
  Transmission Date: 20201103
  Serious: Yes (Other)
  Sender: FDA-Public Use
  Company Number: US-ABBVIE-20K-163-3528728-00

PATIENT
  Age: 26 Year
  Sex: Female
  Weight: 104.42 kg

DRUGS (1)
  1. HUMIRA [Suspect]
     Active Substance: ADALIMUMAB
     Indication: HIDRADENITIS
     Route: 058

REACTIONS (5)
  - Injection site pain [Unknown]
  - Skin atrophy [Unknown]
  - Hidradenitis [Unknown]
  - Weight decreased [Unknown]
  - Gastrectomy [Unknown]

NARRATIVE: CASE EVENT DATE: 20190701
